FAERS Safety Report 9273199 (Version 2)
Quarter: 2013Q2

REPORT INFORMATION
  Report Type: Report from Study
  Country: DE (occurrence: DE)
  Receive Date: 20130506
  Receipt Date: 20130524
  Transmission Date: 20140414
  Serious: Yes (Hospitalization, Other)
  Sender: FDA-Public Use
  Company Number: DE-ABBOTT-13P-062-1082852-00

PATIENT
  Age: 33 Year
  Sex: Male

DRUGS (2)
  1. HUMIRA [Suspect]
     Indication: CROHN^S DISEASE
     Dosage: 160MG BASELINE/80MG WEEK 2
     Route: 058
     Dates: start: 20090421, end: 20121218
  2. AZATHIOPRINE [Concomitant]
     Indication: CROHN^S DISEASE
     Dates: start: 2004

REACTIONS (2)
  - Pneumocystis jirovecii pneumonia [Recovered/Resolved]
  - HIV infection [Not Recovered/Not Resolved]
